FAERS Safety Report 7273876-0 (Version None)
Quarter: 2011Q1

REPORT INFORMATION
  Report Type: 
  Country: None (occurrence: None)
  Receive Date: 20110203
  Receipt Date: 20110121
  Transmission Date: 20110831
  Serious: Yes (Other)
  Sender: FDA-Public Use
  Company Number: US-ELI_LILLY_AND_COMPANY-US201101005588

PATIENT
  Age: 82 Year
  Sex: Female

DRUGS (5)
  1. LORAZEPAM [Concomitant]
     Indication: SLEEP DISORDER
     Dosage: 1 D/F, UNK
  2. ZANTAC [Concomitant]
     Indication: HERNIA
     Dosage: 1 D/F, UNK
  3. MULTIVITAMIN [Concomitant]
     Dosage: 1 D/F, UNK
  4. EVISTA [Suspect]
     Indication: OSTEOPOROSIS
     Dosage: 60 MG, DAILY (1/D)
  5. ASPIRIN [Concomitant]
     Dosage: 1 D/F, UNK

REACTIONS (9)
  - GLAUCOMA [None]
  - FEELING ABNORMAL [None]
  - BLINDNESS UNILATERAL [None]
  - INTRAOCULAR PRESSURE INCREASED [None]
  - CATARACT [None]
  - MACULAR DEGENERATION [None]
  - STRESS [None]
  - RETINAL VEIN OCCLUSION [None]
  - EYE HAEMORRHAGE [None]
